FAERS Safety Report 25861405 (Version 1)
Quarter: 2025Q3

REPORT INFORMATION
  Report Type: Report from Study
  Country: EU (occurrence: EU)
  Receive Date: 20250929
  Receipt Date: 20250929
  Transmission Date: 20251020
  Serious: Yes (Hospitalization)
  Sender: JOHNSON AND JOHNSON
  Company Number: None

PATIENT
  Age: 61 Year
  Sex: Male
  Weight: 75 kg

DRUGS (4)
  1. STELARA [Suspect]
     Active Substance: USTEKINUMAB
     Indication: Parapsoriasis
     Dosage: 465 MG EVERY 3 MONTHS
     Route: 058
     Dates: start: 20100515
  2. ZANIPRESS 10 mg/10 mg COMPRIMIDOS RECUBIERTOS CON PELICULA , 28 compri [Concomitant]
     Indication: Hypertension
     Route: 048
  3. EZETIMIBE\ROSUVASTATIN [Concomitant]
     Active Substance: EZETIMIBE\ROSUVASTATIN
     Indication: Type V hyperlipidaemia
     Route: 048
  4. Rosuvastatina 10 mg 28 comprimidos [Concomitant]
     Indication: Type V hyperlipidaemia
     Route: 048

REACTIONS (1)
  - Angina pectoris [Recovered/Resolved]

NARRATIVE: CASE EVENT DATE: 20240515
